FAERS Safety Report 7988675-1 (Version None)
Quarter: 2011Q4

REPORT INFORMATION
  Report Type: 
  Country: None (occurrence: None)
  Receive Date: 20111218
  Receipt Date: 20111129
  Transmission Date: 20120403
  Serious: No
  Sender: FDA-Public Use
  Company Number: US-ROXANE LABORATORIES, INC.-2011-RO-01716RO

PATIENT
  Age: 26 Year
  Sex: Male

DRUGS (2)
  1. ADDERALL 5 [Concomitant]
     Indication: ATTENTION DEFICIT/HYPERACTIVITY DISORDER
  2. BUPRENORPHINE HCL [Suspect]
     Dosage: 8 MG
     Route: 060

REACTIONS (2)
  - FEELING DRUNK [None]
  - DYSARTHRIA [None]
